FAERS Safety Report 16719055 (Version 1)
Quarter: 2019Q3

REPORT INFORMATION
  Report Type: Spontaneous
  Country: US (occurrence: US)
  Receive Date: 20190820
  Receipt Date: 20190820
  Transmission Date: 20191005
  Serious: Yes (Other)
  Sender: FDA-Public Use
  Company Number: US-BRISTOL-MYERS SQUIBB COMPANY-BMS-2019-080440

PATIENT
  Age: 70 Year
  Sex: Male
  Weight: 81.64 kg

DRUGS (1)
  1. ELIQUIS [Suspect]
     Active Substance: APIXABAN
     Indication: MYOCARDIAL INFARCTION
     Dosage: 5 MILLIGRAM, BID
     Route: 065

REACTIONS (2)
  - Cardiac valve disease [Unknown]
  - Intentional product use issue [Unknown]
